FAERS Safety Report 15014672 (Version 2)
Quarter: 2018Q2

REPORT INFORMATION
  Report Type: Report from Study
  Country: None (occurrence: US)
  Receive Date: 20180615
  Receipt Date: 20180616
  Transmission Date: 20180711
  Serious: Yes (Hospitalization, Other)
  Sender: FDA-Public Use
  Company Number: US-ABBVIE-18K-163-2386052-00

PATIENT
  Age: 55 Year
  Sex: Male

DRUGS (1)
  1. HUMIRA [Suspect]
     Active Substance: ADALIMUMAB
     Indication: CROHN^S DISEASE
     Route: 058
     Dates: end: 201712

REACTIONS (6)
  - Lung disorder [Unknown]
  - Pneumonia legionella [Unknown]
  - Autoimmune disorder [Unknown]
  - Bacterial sepsis [Unknown]
  - Crohn^s disease [Unknown]
  - Renal failure [Unknown]

NARRATIVE: CASE EVENT DATE: 20171213
